FAERS Safety Report 16335402 (Version 4)
Quarter: 2019Q3

REPORT INFORMATION
  Report Type: Spontaneous
  Country: US (occurrence: US)
  Receive Date: 20190521
  Receipt Date: 20190813
  Transmission Date: 20191004
  Serious: Yes (Hospitalization)
  Sender: FDA-Public Use
  Company Number: US-SHIRE-US201916350

PATIENT
  Age: 41 Year
  Sex: Female
  Weight: 156.01 kg

DRUGS (2)
  1. NATPARA (PARATHYROID HORMONE) [Suspect]
     Active Substance: PARATHYROID HORMONE
     Dosage: 100 MILLIGRAM
     Route: 065
     Dates: start: 20171128
  2. NATPARA (PARATHYROID HORMONE) [Suspect]
     Active Substance: PARATHYROID HORMONE
     Indication: HYPOPARATHYROIDISM
     Dosage: 75 MICROGRAM, 1X/DAY:QD
     Route: 065
     Dates: start: 20171128

REACTIONS (2)
  - Blood calcium decreased [Recovered/Resolved]
  - Calcium metabolism disorder [Unknown]

NARRATIVE: CASE EVENT DATE: 20190516
